FAERS Safety Report 8141448-1 (Version None)
Quarter: 2012Q1

REPORT INFORMATION
  Report Type: 
  Country: None (occurrence: None)
  Receive Date: 20120216
  Receipt Date: 20120201
  Transmission Date: 20120608
  Serious: Yes (Other)
  Sender: FDA-Public Use
  Company Number: JP-ROCHE-1038492

PATIENT
  Age: 57 Year
  Sex: Female

DRUGS (7)
  1. VINCRISTINE SULFATE [Concomitant]
     Indication: DIFFUSE LARGE B-CELL LYMPHOMA
  2. CYCLOPHOSPHAMIDE [Concomitant]
     Indication: DIFFUSE LARGE B-CELL LYMPHOMA
  3. PROCARBAZINE HYDROCHLORIDE [Concomitant]
     Indication: DIFFUSE LARGE B-CELL LYMPHOMA
  4. RITUXIMAB [Suspect]
     Indication: DIFFUSE LARGE B-CELL LYMPHOMA
     Route: 065
  5. PREDNISOLONE [Concomitant]
     Indication: DIFFUSE LARGE B-CELL LYMPHOMA
  6. DOXORUBICIN HCL [Concomitant]
     Indication: DIFFUSE LARGE B-CELL LYMPHOMA
  7. ETOPOSIDE [Concomitant]
     Indication: DIFFUSE LARGE B-CELL LYMPHOMA

REACTIONS (1)
  - PANCREATIC CARCINOMA [None]
